FAERS Safety Report 9825686 (Version 2)
Quarter: 2014Q1

REPORT INFORMATION
  Report Type: Spontaneous
  Country: US (occurrence: None)
  Receive Date: 20131223
  Receipt Date: 20140228
  Transmission Date: 20141002
  Serious: No
  Sender: FDA-Public Use
  Company Number: 220962LEO

PATIENT
  Age: 59 Year
  Sex: Female

DRUGS (1)
  1. PICATO [Suspect]
     Indication: ACTINIC KERATOSIS
     Dosage: FOR 3 DAYS, ON FACE
     Route: 061
     Dates: start: 20130312, end: 20130314

REACTIONS (2)
  - Application site erythema [None]
  - Application site vesicles [None]
